FAERS Safety Report 5706814-X (Version None)
Quarter: 2008Q2

REPORT INFORMATION
  Report Type: 
  Country: None (occurrence: None)
  Receive Date: 20080416
  Receipt Date: 20080403
  Transmission Date: 20081010
  Serious: Yes (Hospitalization)
  Sender: FDA-Public Use
  Company Number: FR-JNJFOC-20080403867

PATIENT
  Age: 69 Year
  Sex: Female

DRUGS (11)
  1. CONTRAMAL [Suspect]
     Indication: PAIN
     Route: 042
  2. OFLOCET [Suspect]
     Indication: FEBRILE BONE MARROW APLASIA
     Route: 048
  3. ORAMORPH SR [Suspect]
     Indication: DRUG USE FOR UNKNOWN INDICATION
     Route: 048
  4. ANAFRANIL [Suspect]
     Indication: DRUG USE FOR UNKNOWN INDICATION
     Route: 048
  5. IMOVANE [Suspect]
     Indication: DRUG USE FOR UNKNOWN INDICATION
     Route: 048
  6. LIVIAL [Concomitant]
  7. TAZOCILLINE [Concomitant]
  8. TAXOTERE [Concomitant]
  9. NEULASTA [Concomitant]
  10. FUNGIZONE [Concomitant]
  11. SODIUM BICARBONATE [Concomitant]

REACTIONS (7)
  - ABDOMINAL PAIN [None]
  - CONFUSIONAL STATE [None]
  - DISORIENTATION [None]
  - FEBRILE BONE MARROW APLASIA [None]
  - MUCOSAL INFLAMMATION [None]
  - ORAL CANDIDIASIS [None]
  - ORAL PAIN [None]
